FAERS Safety Report 6535301-4 (Version None)
Quarter: 2010Q1

REPORT INFORMATION
  Report Type: 
  Country: None (occurrence: None)
  Receive Date: 20100111
  Receipt Date: 20100111
  Transmission Date: 20100710
  Serious: Yes (Other)
  Sender: FDA-Public Use
  Company Number: None

PATIENT
  Age: 40 Year
  Sex: Female
  Weight: 86.1834 kg

DRUGS (1)
  1. ZICAM NASAL SWABS [Suspect]
     Dosage: 1 SWAB EVERY 8 HRS
     Dates: start: 20081101, end: 20081224

REACTIONS (3)
  - AGEUSIA [None]
  - ANOSMIA [None]
  - HYPOSMIA [None]
